FAERS Safety Report 15592598 (Version 2)
Quarter: 2018Q4

REPORT INFORMATION
  Report Type: Spontaneous
  Country: DE (occurrence: DE)
  Receive Date: 20181107
  Receipt Date: 20181116
  Transmission Date: 20190205
  Serious: Yes (Hospitalization)
  Sender: FDA-Public Use
  Company Number: DE-EISAI MEDICAL RESEARCH-EC-2018-047299

PATIENT
  Age: 63 Year
  Sex: Male
  Weight: 71 kg

DRUGS (6)
  1. AFINITOR [Concomitant]
     Active Substance: EVEROLIMUS
     Indication: RENAL CELL CARCINOMA
     Route: 048
     Dates: start: 20180228, end: 20180613
  2. VALSARTAN. [Concomitant]
     Active Substance: VALSARTAN
     Indication: HYPERTENSION
     Route: 048
     Dates: start: 20000615, end: 20180613
  3. NITRENDIPIN [Concomitant]
     Active Substance: NITRENDIPINE
     Indication: HYPERTENSION
     Route: 048
     Dates: start: 20000615, end: 20180613
  4. KISPLYX [Suspect]
     Active Substance: LENVATINIB
     Indication: RENAL CELL CARCINOMA
     Route: 048
     Dates: start: 20180228, end: 20180314
  5. SPIRONOLACTON [Concomitant]
     Active Substance: SPIRONOLACTONE
     Indication: PLEURAL EFFUSION
     Route: 048
     Dates: start: 20180115, end: 20181106
  6. KISPLYX [Suspect]
     Active Substance: LENVATINIB
     Route: 048
     Dates: start: 20180315, end: 20180613

REACTIONS (2)
  - Pleural effusion [Unknown]
  - Bronchopulmonary aspergillosis [Recovering/Resolving]

NARRATIVE: CASE EVENT DATE: 20180618
